FAERS Safety Report 5730394-6 (Version None)
Quarter: 2008Q2

REPORT INFORMATION
  Report Type: 
  Country: None (occurrence: None)
  Receive Date: 20080502
  Receipt Date: 20080421
  Transmission Date: 20081010
  Serious: Yes (Other)
  Sender: FDA-Public Use
  Company Number: 2008EU000745

PATIENT
  Age: 85 Year
  Sex: Female
  Weight: 55 kg

DRUGS (3)
  1. VESICARE [Suspect]
     Indication: NOCTURIA
     Dosage: 10 MG,  /D, ORAL
     Route: 048
     Dates: start: 20080218, end: 20080301
  2. STALEVO (ENTACAPONE, CARBIDOPA) [Concomitant]
  3. TEMAZEPAM [Concomitant]

REACTIONS (2)
  - CONDITION AGGRAVATED [None]
  - PARKINSON'S DISEASE [None]
